FAERS Safety Report 16461245 (Version 3)
Quarter: 2020Q2

REPORT INFORMATION
  Report Type: Spontaneous
  Country: US (occurrence: US)
  Receive Date: 20190621
  Receipt Date: 20200623
  Transmission Date: 20200713
  Serious: Yes (Other)
  Sender: FDA-Public Use
  Company Number: US-CIPLA LTD.-2019US04597

PATIENT

DRUGS (7)
  1. MONTELUKAST [Concomitant]
     Active Substance: MONTELUKAST SODIUM
     Indication: ASTHMA
     Dosage: 10 MILLIGRAM, QD
     Route: 065
     Dates: start: 2014
  2. SIMVASTATIN. [Concomitant]
     Active Substance: SIMVASTATIN
     Indication: HYPERTENSION
     Dosage: 40 MILLIGRAM, QD
     Route: 065
     Dates: start: 2014
  3. VENTOLIN [Concomitant]
     Active Substance: ALBUTEROL SULFATE
     Indication: DYSPNOEA
     Dosage: 90 MICROGRAM, 4-6 TIMES A DAY/ ONCE A DAY, INHALER SPRAY
     Route: 065
     Dates: start: 2017
  4. LISINOPRIL. [Concomitant]
     Active Substance: LISINOPRIL
     Indication: HYPERTENSION
     Dosage: 40 MILLIGRAM A DAY
     Route: 065
  5. BUDESONIDE. [Suspect]
     Active Substance: BUDESONIDE
     Indication: LUNG DISORDER
  6. BUDESONIDE. [Suspect]
     Active Substance: BUDESONIDE
     Indication: ASTHMA
     Dosage: UNK, 0.25 MG;2 ML, ONCE OR TWICE A DAY
     Route: 045
     Dates: start: 20190611
  7. BUDESONIDE. [Suspect]
     Active Substance: BUDESONIDE
     Indication: PULMONARY FIBROSIS

REACTIONS (5)
  - Asthma [Unknown]
  - Off label use [Unknown]
  - Product odour abnormal [Unknown]
  - Product use in unapproved indication [Unknown]
  - Product use issue [Unknown]
